FAERS Safety Report 18496924 (Version 2)
Quarter: 2024Q2

REPORT INFORMATION
  Report Type: Spontaneous
  Country: US (occurrence: US)
  Receive Date: 20201112
  Receipt Date: 20240619
  Transmission Date: 20240715
  Serious: No
  Sender: FDA-Public Use
  Company Number: US-SANOFI-00347061

PATIENT
  Age: 42 Year
  Sex: Female

DRUGS (1)
  1. TOUJEO MAX [Suspect]
     Active Substance: INSULIN GLARGINE
     Dosage: 34 IU, QD
     Route: 065
     Dates: start: 20200901

REACTIONS (4)
  - Feeling abnormal [Unknown]
  - Headache [Unknown]
  - Hunger [Unknown]
  - Blood glucose increased [Unknown]
